FAERS Safety Report 6492101-1 (Version None)
Quarter: 2009Q4

REPORT INFORMATION
  Report Type: 
  Country: None (occurrence: None)
  Receive Date: 20091125
  Receipt Date: 20090512
  Transmission Date: 20100525
  Serious: Yes (Hospitalization)
  Sender: FDA-Public Use
  Company Number: 2009BH008428

PATIENT
  Age: 58 Year
  Sex: Male

DRUGS (8)
  1. DIANEAL [Suspect]
     Indication: PERITONEAL DIALYSIS
     Dosage: 14.5 L ; EVERY DAY ; IP
     Route: 033
     Dates: start: 20080501
  2. MIRALAX [Concomitant]
  3. NOVOLIN 70/30 [Concomitant]
  4. AMLODIPINE BESYLATE [Concomitant]
  5. PHOSLO [Concomitant]
  6. PENTOXIFYLLINE [Concomitant]
  7. NEURONTIN [Concomitant]
  8. HECTOROL [Concomitant]

REACTIONS (4)
  - NAUSEA [None]
  - PERITONEAL DIALYSIS COMPLICATION [None]
  - PERITONITIS [None]
  - VOMITING [None]
